FAERS Safety Report 15917682 (Version 1)
Quarter: 2019Q1

REPORT INFORMATION
  Report Type: Other
  Country: US (occurrence: US)
  Receive Date: 20190205
  Receipt Date: 20190205
  Transmission Date: 20190417
  Serious: Yes (Life-Threatening, Hospitalization, Other)
  Sender: FDA-Public Use
  Company Number: US-DENTSPLY-2019SCDP000057

PATIENT
  Age: 76 Year
  Sex: Female

DRUGS (2)
  1. LIDOCAINE. [Suspect]
     Active Substance: LIDOCAINE
     Indication: LOCAL ANAESTHESIA
     Dosage: 3 DF, 25 TO 30 ML LIDOCAINE 4%
     Route: 061
  2. LIDOCAINE. [Suspect]
     Active Substance: LIDOCAINE
     Dosage: 2 DF,25 TO 30 ML LIDOCAINE 2 %
     Route: 061

REACTIONS (8)
  - Acute kidney injury [Recovered/Resolved]
  - Renal tubular necrosis [Recovered/Resolved]
  - Cardiac arrest [Recovered/Resolved]
  - Seizure [Recovered/Resolved]
  - Respiratory failure [Unknown]
  - Pulse absent [Recovered/Resolved]
  - Toxicity to various agents [Recovered/Resolved]
  - Right ventricular dysfunction [Recovered/Resolved]
